FAERS Safety Report 21715285 (Version 1)
Quarter: 2022Q4

REPORT INFORMATION
  Report Type: Spontaneous
  Country: US (occurrence: US)
  Receive Date: 20221212
  Receipt Date: 20221212
  Transmission Date: 20230112
  Serious: No
  Sender: FDA-Public Use
  Company Number: US-FERRINGPH-2022FE03968

PATIENT
  Age: 38 Year
  Sex: Female

DRUGS (2)
  1. MENOPUR [Suspect]
     Active Substance: FOLLITROPIN\LUTEINIZING HORMONE
     Indication: Product used for unknown indication
     Dosage: UNK
     Route: 065
     Dates: start: 20220722, end: 20220725
  2. GONAL-F [Suspect]
     Active Substance: FOLLITROPIN
     Indication: Product used for unknown indication
     Dosage: UNK
     Route: 065
     Dates: start: 20220722, end: 20220725

REACTIONS (3)
  - Asthenia [Recovering/Resolving]
  - Speech disorder [Recovering/Resolving]
  - Feeling drunk [Recovering/Resolving]

NARRATIVE: CASE EVENT DATE: 20220722
